FAERS Safety Report 8116844-9 (Version None)
Quarter: 2012Q1

REPORT INFORMATION
  Report Type: 
  Country: None (occurrence: None)
  Receive Date: 20120206
  Receipt Date: 20120201
  Transmission Date: 20120608
  Serious: Yes (Hospitalization, Other)
  Sender: FDA-Public Use
  Company Number: PHEH2012US002837

PATIENT
  Sex: Female

DRUGS (18)
  1. TOPAMAX [Concomitant]
     Dosage: UNK
  2. DURAGESIC-100 [Concomitant]
  3. KLOR-CON [Concomitant]
  4. HYDROCODONE BITARTRATE [Concomitant]
  5. MIRAPEX [Concomitant]
  6. ONDANSETRON HCL [Concomitant]
  7. FLECTOR [Concomitant]
  8. VITAMIN B-12 [Concomitant]
  9. CYCLOBENZAPRINE [Concomitant]
  10. TRAZODONE HCL [Concomitant]
  11. DOXEPIN HCL [Concomitant]
  12. CALCIUM [Concomitant]
  13. MORPHINE [Concomitant]
  14. LYRICA [Concomitant]
  15. BYSTOLIC [Concomitant]
  16. PRILOSEC [Concomitant]
  17. VITAMIN D [Concomitant]
  18. RECLAST [Suspect]
     Route: 042
     Dates: start: 20100527

REACTIONS (11)
  - IMPAIRED GASTRIC EMPTYING [None]
  - INFECTION [None]
  - PNEUMONIA [None]
  - ATRIAL FIBRILLATION [None]
  - WEIGHT DECREASED [None]
  - BONE PAIN [None]
  - IMMUNE SYSTEM DISORDER [None]
  - LEUKOPENIA [None]
  - FEEDING TUBE COMPLICATION [None]
  - OSTEONECROSIS OF JAW [None]
  - EXOSTOSIS [None]
